FAERS Safety Report 16925763 (Version 6)
Quarter: 2020Q1

REPORT INFORMATION
  Report Type: Spontaneous
  Country: US (occurrence: US)
  Receive Date: 20191016
  Receipt Date: 20200121
  Transmission Date: 20200409
  Serious: Yes (Death)
  Sender: FDA-Public Use
  Company Number: US-ACTELION-A-US2019-196895

PATIENT
  Age: 75 Year
  Sex: Male

DRUGS (4)
  1. ADEMPAS [Concomitant]
     Active Substance: RIOCIGUAT
  2. UPTRAVI [Suspect]
     Active Substance: SELEXIPAG
     Indication: PULMONARY ARTERIAL HYPERTENSION
     Dosage: 200 MCG, BID
     Route: 048
     Dates: start: 20190827, end: 20191018
  3. UPTRAVI [Suspect]
     Active Substance: SELEXIPAG
     Dosage: 200 MCG, BID
     Route: 048
     Dates: start: 201911
  4. OPSUMIT [Suspect]
     Active Substance: MACITENTAN
     Indication: PULMONARY ARTERIAL HYPERTENSION
     Dosage: 10 MG, QD
     Route: 048
     Dates: start: 20190827, end: 20191228

REACTIONS (8)
  - Pain in jaw [Unknown]
  - Hospice care [Unknown]
  - Dyspnoea [Unknown]
  - Diarrhoea [Unknown]
  - Death [Fatal]
  - Incontinence [Unknown]
  - Faeces discoloured [Unknown]
  - Malaise [Unknown]

NARRATIVE: CASE EVENT DATE: 20191228
